FAERS Safety Report 9571058 (Version 1)
Quarter: 2013Q4

REPORT INFORMATION
  Report Type: Spontaneous
  Country: US (occurrence: US)
  Receive Date: 20131001
  Receipt Date: 20131001
  Transmission Date: 20140711
  Serious: No
  Sender: FDA-Public Use
  Company Number: US-BAYER-2013-118161

PATIENT
  Age: 27 Year
  Sex: Female

DRUGS (1)
  1. SKYLA [Suspect]
     Dosage: 14 MCG/24HR, CONT
     Route: 015
     Dates: start: 20130607, end: 201306

REACTIONS (1)
  - Abdominal pain lower [None]
